FAERS Safety Report 7621737-7 (Version None)
Quarter: 2011Q3

REPORT INFORMATION
  Report Type: 
  Country: None (occurrence: None)
  Receive Date: 20110719
  Receipt Date: 20110715
  Transmission Date: 20111222
  Serious: Yes (Death, Hospitalization)
  Sender: FDA-Public Use
  Company Number: IE-ASTRAZENECA-2011SE42497

PATIENT
  Age: 33589 Day
  Sex: Female

DRUGS (2)
  1. NEXIUM [Suspect]
     Indication: PROPHYLAXIS AGAINST GASTROINTESTINAL ULCER
     Route: 048
     Dates: start: 20100901
  2. ARCOXIA [Suspect]
     Indication: OSTEOARTHRITIS
     Dates: start: 20100901

REACTIONS (3)
  - DUODENAL ULCER PERFORATION [None]
  - RENAL FAILURE CHRONIC [None]
  - CARDIAC FAILURE CONGESTIVE [None]
